FAERS Safety Report 24335258 (Version 8)
Quarter: 2025Q3

REPORT INFORMATION
  Report Type: Spontaneous
  Country: US (occurrence: US)
  Receive Date: 20240918
  Receipt Date: 20250817
  Transmission Date: 20251020
  Serious: Yes (Hospitalization, Other)
  Sender: SANOFI AVENTIS
  Company Number: US-SA-2024SA266914

PATIENT
  Age: 53 Year
  Sex: Male

DRUGS (8)
  1. CEREZYME [Suspect]
     Active Substance: IMIGLUCERASE
     Indication: Gaucher^s disease
     Dosage: 6000 IU, QOW
     Route: 042
     Dates: start: 202008
  2. CEREZYME [Suspect]
     Active Substance: IMIGLUCERASE
     Dosage: 5600 U, QOW
     Route: 042
     Dates: start: 202007
  3. CEREZYME [Suspect]
     Active Substance: IMIGLUCERASE
     Dosage: 5880 U, QOW
     Route: 042
  4. SODIUM CHLORIDE [Concomitant]
     Active Substance: SODIUM CHLORIDE
  5. EPINEPHRINE [Concomitant]
     Active Substance: EPINEPHRINE
  6. STERILE WATER [Concomitant]
     Active Substance: WATER
  7. SODIUM CHLORIDE [Concomitant]
     Active Substance: SODIUM CHLORIDE
  8. SODIUM CHLORIDE [Concomitant]
     Active Substance: SODIUM CHLORIDE

REACTIONS (9)
  - Sarcoma excision [Unknown]
  - Angiosarcoma [Unknown]
  - Hip surgery [Recovering/Resolving]
  - Weight increased [Unknown]
  - Weight decreased [Unknown]
  - Pain in extremity [Unknown]
  - Condition aggravated [Unknown]
  - Disease progression [Not Recovered/Not Resolved]
  - Limb operation [Recovering/Resolving]

NARRATIVE: CASE EVENT DATE: 20240101
